FAERS Safety Report 8154039-3 (Version None)
Quarter: 2012Q1

REPORT INFORMATION
  Report Type: 
  Country: None (occurrence: None)
  Receive Date: 20120221
  Receipt Date: 20120221
  Transmission Date: 20120608
  Serious: Yes (Disabling)
  Sender: FDA-Public Use
  Company Number: None

PATIENT
  Age: 68 Year
  Sex: Female
  Weight: 63.502 kg

DRUGS (1)
  1. TOPIRAMATE [Suspect]
     Indication: MIGRAINE
     Dosage: 25 MG
     Route: 048
     Dates: start: 20110429, end: 20111216

REACTIONS (3)
  - PLATELET COUNT DECREASED [None]
  - VISUAL ACUITY REDUCED [None]
  - CONTUSION [None]
